FAERS Safety Report 9408839 (Version 1)
Quarter: 2013Q3

REPORT INFORMATION
  Report Type: Spontaneous
  Country: US (occurrence: US)
  Receive Date: 20130719
  Receipt Date: 20130719
  Transmission Date: 20140515
  Serious: No
  Sender: FDA-Public Use
  Company Number: US-009507513-1307USA006366

PATIENT
  Age: 84 Year
  Sex: Female

DRUGS (1)
  1. ASMANEX TWISTHALER [Suspect]
     Dosage: 1 PUFF ONCE DAILY, ORAL INHALATION
     Route: 055
     Dates: start: 20130610

REACTIONS (1)
  - Drug ineffective [Unknown]
